FAERS Safety Report 22066575 (Version 1)
Quarter: 2023Q1

REPORT INFORMATION
  Report Type: Spontaneous
  Country: RU (occurrence: RU)
  Receive Date: 20230306
  Receipt Date: 20230306
  Transmission Date: 20230417
  Serious: Yes (Hospitalization)
  Sender: FDA-Public Use
  Company Number: RU-SA-2023SA071287

PATIENT
  Age: 52 Year
  Sex: Female

DRUGS (5)
  1. APIDRA SOLOSTAR [Suspect]
     Active Substance: INSULIN GLULISINE
     Indication: Diabetes mellitus
     Dosage: 8 IU
     Dates: start: 20230130, end: 20230208
  2. LANTUS SOLOSTAR [Suspect]
     Active Substance: INSULIN GLARGINE
     Indication: Diabetes mellitus
     Dosage: 40 IU
     Route: 058
     Dates: start: 20230109, end: 20230209
  3. CYANOCOBALAMIN [Concomitant]
     Active Substance: CYANOCOBALAMIN
     Indication: Diabetes mellitus
     Dosage: UNK
     Route: 042
     Dates: start: 20230131, end: 20230208
  4. ASCORBIC ACID [Concomitant]
     Active Substance: ASCORBIC ACID
     Indication: Diabetes mellitus
     Dosage: UNK
     Route: 042
     Dates: start: 20230131, end: 20230208
  5. .ALPHA.-LIPOIC ACID [Concomitant]
     Active Substance: .ALPHA.-LIPOIC ACID
     Indication: Diabetic neuropathy
     Dosage: 600 MG
     Route: 041

REACTIONS (1)
  - Urticaria [Recovered/Resolved]

NARRATIVE: CASE EVENT DATE: 20230208
